FAERS Safety Report 7482693-8 (Version None)
Quarter: 2011Q2

REPORT INFORMATION
  Report Type: 
  Country: None (occurrence: None)
  Receive Date: 20110516
  Receipt Date: 20110513
  Transmission Date: 20111010
  Serious: Yes (Other)
  Sender: FDA-Public Use
  Company Number: GR-BRISTOL-MYERS SQUIBB COMPANY-15729544

PATIENT
  Age: 25 Year
  Sex: Female

DRUGS (4)
  1. SOLIAN [Concomitant]
     Dosage: ALSO TAKEN SOLIAN 200 MG/D FROM 02/2011 UNTIL 31-MAR-2011
     Dates: start: 20080901, end: 20110101
  2. VENLAFAXINE HCL [Concomitant]
     Dates: start: 20101212, end: 20110101
  3. AKINETON [Concomitant]
     Dates: start: 20080901, end: 20110331
  4. ABILIFY [Suspect]
     Indication: PSYCHOTIC DISORDER
     Route: 048
     Dates: start: 20101212, end: 20110101

REACTIONS (5)
  - PSYCHOTIC DISORDER [None]
  - INSOMNIA [None]
  - HYPERHIDROSIS [None]
  - TREMOR [None]
  - TACHYCARDIA [None]
